FAERS Safety Report 4459127-0 (Version None)
Quarter: 2004Q3

REPORT INFORMATION
  Report Type: 
  Country: None (occurrence: None)
  Receive Date: 20040920
  Receipt Date: 20040920
  Transmission Date: 20050211
  Serious: Yes (Other)
  Sender: FDA-Public Use
  Company Number: None

PATIENT
  Sex: Male

DRUGS (1)
  1. AUGMENTIN [Suspect]

REACTIONS (4)
  - DRUG INEFFECTIVE [None]
  - PHARYNGITIS [None]
  - RASH [None]
  - SINUSITIS [None]
